FAERS Safety Report 4746065-9 (Version None)
Quarter: 2005Q3

REPORT INFORMATION
  Report Type: 
  Country: None (occurrence: None)
  Receive Date: 20050816
  Receipt Date: 20050801
  Transmission Date: 20060218
  Serious: Yes (Other)
  Sender: FDA-Public Use
  Company Number: GBWYE875302AUG05

PATIENT
  Age: 68 Year
  Sex: Male

DRUGS (1)
  1. ENBREL [Suspect]
     Indication: DRUG USE FOR UNKNOWN INDICATION
     Route: 058
     Dates: start: 20031201, end: 20040101

REACTIONS (6)
  - CONDITION AGGRAVATED [None]
  - EYE DISORDER [None]
  - GINGIVAL DISORDER [None]
  - NASOPHARYNGITIS [None]
  - TOOTH DISORDER [None]
  - URINARY TRACT INFECTION [None]
